FAERS Safety Report 8812594 (Version 6)
Quarter: 2012Q4

REPORT INFORMATION
  Report Type: 
  Country: US (occurrence: US)
  Receive Date: 20120927
  Receipt Date: 20121207
  Transmission Date: 20130627
  Serious: No
  Sender: FDA-Public Use
  Company Number: US-009507513-1209USA004816

PATIENT
  Sex: Female

DRUGS (3)
  1. PEGINTRON [Suspect]
     Indication: HEPATITIS C
     Dosage: UNK
     Route: 058
     Dates: start: 20120903
  2. RIBAVIRIN [Suspect]
     Indication: HEPATITIS C
     Dosage: UNK
     Route: 048
     Dates: start: 20120903
  3. VICTRELIS [Suspect]
     Indication: HEPATITIS C
     Dosage: UNK
     Route: 048
     Dates: start: 20121001

REACTIONS (38)
  - Poor quality sleep [Unknown]
  - Mental disorder [Unknown]
  - Nervous system disorder [Unknown]
  - Somnolence [Unknown]
  - Pain [Unknown]
  - Weight increased [Unknown]
  - Pain [Unknown]
  - Insomnia [Recovering/Resolving]
  - Erythema [Unknown]
  - Rash pruritic [Unknown]
  - Candidiasis [Unknown]
  - Burning sensation [Unknown]
  - Insomnia [Unknown]
  - Drug dose omission [Unknown]
  - Insomnia [Unknown]
  - Memory impairment [Unknown]
  - Palpitations [Unknown]
  - Insomnia [Unknown]
  - Palpitations [Unknown]
  - Rash [Unknown]
  - Myalgia [Unknown]
  - Chills [Unknown]
  - Pyrexia [Unknown]
  - Headache [Unknown]
  - Dry skin [Unknown]
  - Malaise [Unknown]
  - Fatigue [Unknown]
  - Fatigue [Unknown]
  - Pruritus [Unknown]
  - Cough [Unknown]
  - Dehydration [Unknown]
  - Pruritus [Unknown]
  - Pharyngitis [Unknown]
  - Fatigue [Unknown]
  - Rash generalised [Unknown]
  - Insomnia [Unknown]
  - Condition aggravated [Unknown]
  - Anaemia [Unknown]
